FAERS Safety Report 17201150 (Version 1)
Quarter: 2019Q4

REPORT INFORMATION
  Report Type: Spontaneous
  Country: TR (occurrence: TR)
  Receive Date: 20191226
  Receipt Date: 20191226
  Transmission Date: 20200122
  Serious: Yes (Other)
  Sender: FDA-Public Use
  Company Number: TR-GLAXOSMITHKLINE-TR2019229445

PATIENT
  Age: 17 Year
  Sex: Female

DRUGS (2)
  1. LAMICTAL [Suspect]
     Active Substance: LAMOTRIGINE
     Indication: PRODUCT USED FOR UNKNOWN INDICATION
     Dosage: 75 MG, BID
  2. LAMICTAL [Suspect]
     Active Substance: LAMOTRIGINE
     Dosage: 100 MG, BID

REACTIONS (9)
  - Metrorrhagia [Not Recovered/Not Resolved]
  - Alopecia [Not Recovered/Not Resolved]
  - Hirsutism [Not Recovered/Not Resolved]
  - Breast atrophy [Not Recovered/Not Resolved]
  - Drug ineffective [Not Recovered/Not Resolved]
  - Weight decreased [Not Recovered/Not Resolved]
  - Feeling abnormal [Unknown]
  - Menstruation irregular [Not Recovered/Not Resolved]
  - Diabetes mellitus [Not Recovered/Not Resolved]
